FAERS Safety Report 12416740 (Version 1)
Quarter: 2016Q2

REPORT INFORMATION
  Report Type: Spontaneous
  Country: US (occurrence: US)
  Receive Date: 20160530
  Receipt Date: 20160530
  Transmission Date: 20160815
  Serious: No
  Sender: FDA-Public Use
  Company Number: US-WEST-WARD PHARMACEUTICALS CORP.-US-H14001-16-00285

PATIENT
  Sex: Male
  Weight: 88.43 kg

DRUGS (5)
  1. TESTOSTERONE CYPIONATE USP [Suspect]
     Active Substance: TESTOSTERONE CYPIONATE
     Indication: BLOOD TESTOSTERONE DECREASED
     Route: 030
     Dates: start: 2013, end: 2015
  2. TESTOSTERONE CYPIONATE USP [Suspect]
     Active Substance: TESTOSTERONE CYPIONATE
     Route: 030
     Dates: start: 201510
  3. FISH OIL [Concomitant]
     Active Substance: FISH OIL
     Indication: PRODUCT USED FOR UNKNOWN INDICATION
     Route: 065
     Dates: start: 2012
  4. NIACIN. [Concomitant]
     Active Substance: NIACIN
     Indication: PRODUCT USED FOR UNKNOWN INDICATION
     Route: 065
     Dates: start: 2012
  5. TESTOSTERONE CYPIONATE USP [Suspect]
     Active Substance: TESTOSTERONE CYPIONATE
     Route: 030

REACTIONS (4)
  - Administration site bruise [Recovered/Resolved]
  - Drug administered at inappropriate site [Unknown]
  - Product physical consistency issue [None]
  - Administration site pain [Recovered/Resolved]

NARRATIVE: CASE EVENT DATE: 2013
